FAERS Safety Report 12439209 (Version 14)
Quarter: 2018Q3

REPORT INFORMATION
  Report Type: Spontaneous
  Country: US (occurrence: US)
  Receive Date: 20160606
  Receipt Date: 20180720
  Transmission Date: 20181010
  Serious: Yes (Hospitalization, Other)
  Sender: FDA-Public Use
  Company Number: US-PFIZER INC-2016283379

PATIENT
  Age: 75 Year
  Sex: Female
  Weight: 93 kg

DRUGS (18)
  1. LYRICA [Suspect]
     Active Substance: PREGABALIN
     Indication: NEURALGIA
     Dosage: UNK, 3X/DAY
     Route: 048
     Dates: start: 2015, end: 20160531
  2. LYRICA [Suspect]
     Active Substance: PREGABALIN
     Indication: DIABETIC NEUROPATHY
     Dosage: 100 MG, 3X/DAY
     Route: 048
     Dates: end: 20180711
  3. HYDROCODONE?ACETAMINOPHEN [Concomitant]
     Active Substance: ACETAMINOPHEN\HYDROCODONE
     Indication: PAIN
     Dosage: 1 DF, AS NEEDED, (HYDROCODONE 10 MG/ ACETAMINOPHEN 325 MG) (EVERY SIX TO EIGHT HOURS)
     Route: 048
  4. METFORMIN [Concomitant]
     Active Substance: METFORMIN HYDROCHLORIDE
     Indication: DIABETES MELLITUS
     Dosage: 1000 MG, 2X/DAY, (AS DIRECTED)
     Route: 048
  5. HYDROCODONE [Concomitant]
     Active Substance: HYDROCODONE
     Indication: PSORIATIC ARTHROPATHY
     Dosage: 10 MG, 2X/DAY
  6. IBUPROFEN. [Concomitant]
     Active Substance: IBUPROFEN
     Indication: PAIN
     Dosage: 600 MG, AS NEEDED, (THREE TIMES DAILY)
     Route: 048
  7. LOSARTAN POTASSIUM AND HYDROCHLOROTHIAZIDE [Concomitant]
     Active Substance: HYDROCHLOROTHIAZIDE\LOSARTAN POTASSIUM
     Indication: BLOOD PRESSURE ABNORMAL
     Dosage: 1 DF, 1X/DAY, (LOSARTAN 100 MG/ HYDROCHLOROTHIAZIDE 25 MG) (AS DIRECTED)
     Route: 048
  8. LOSARTAN POTASSIUM AND HYDROCHLOROTHIAZIDE [Concomitant]
     Active Substance: HYDROCHLOROTHIAZIDE\LOSARTAN POTASSIUM
     Indication: RENAL DISORDER
  9. LYRICA [Suspect]
     Active Substance: PREGABALIN
     Indication: LUMBAR RADICULOPATHY
     Dosage: 75 MG, 3X/DAY
     Route: 048
     Dates: end: 201801
  10. LYRICA [Suspect]
     Active Substance: PREGABALIN
     Indication: SWELLING
  11. TRIXAICIN HP [Concomitant]
     Active Substance: CAPSICUM OLEORESIN
     Indication: OSTEOARTHRITIS
  12. ATORVASTATIN [Concomitant]
     Active Substance: ATORVASTATIN
     Indication: BLOOD CHOLESTEROL ABNORMAL
     Dosage: 40 MG, 1X/DAY, (AT BEDTIME AS DIRECTED)
     Route: 048
  13. ALENDRONATE [Concomitant]
     Active Substance: ALENDRONATE SODIUM
     Indication: OSTEOPOROSIS
     Dosage: 70 MG, WEEKLY, (ONCE A WEEK AS DIRECTED)
     Route: 048
  14. TRIXAICIN HP [Concomitant]
     Active Substance: CAPSICUM OLEORESIN
     Indication: PAIN
     Dosage: UNK UNK, AS NEEDED, (APPLY 1 A SMALL AMOUNT TO AFFECTED AREA THREE TIMES A DAY)
  15. LYRICA [Suspect]
     Active Substance: PREGABALIN
     Indication: PAIN
  16. LYRICA [Suspect]
     Active Substance: PREGABALIN
     Indication: SENSORY DISTURBANCE
  17. BUTALBITAL, ACETAMINOPHEN, AND CAFFEINE [Concomitant]
     Active Substance: ACETAMINOPHEN\BUTALBITAL\CAFFEINE
     Indication: HEADACHE
     Dosage: 2 DF, AS NEEDED, (BUTALBITAL 50 MG/ACETAMINOPHEN 325 MG/CAFFEINE 40 MG, ONCE DAY)
     Route: 048
  18. AMLODIPINE [Concomitant]
     Active Substance: AMLODIPINE BESYLATE
     Indication: BLOOD PRESSURE ABNORMAL
     Dosage: 10 MG, 1X/DAY AS DIRECTED
     Route: 048

REACTIONS (8)
  - Foot fracture [Not Recovered/Not Resolved]
  - Cataract [Unknown]
  - Pain in extremity [Not Recovered/Not Resolved]
  - Agitation [Unknown]
  - Headache [Not Recovered/Not Resolved]
  - Drug dose omission [Unknown]
  - Pain [Not Recovered/Not Resolved]
  - Malaise [Not Recovered/Not Resolved]

NARRATIVE: CASE EVENT DATE: 20160531
